FAERS Safety Report 10646238 (Version 1)
Quarter: 2014Q4

REPORT INFORMATION
  Report Type: Report from Study
  Country: US (occurrence: US)
  Receive Date: 20141211
  Receipt Date: 20141211
  Transmission Date: 20150529
  Serious: Yes (Hospitalization, Other)
  Sender: FDA-Public Use
  Company Number: US-GILEAD-2014-0126190

PATIENT
  Age: 43 Year
  Sex: Female

DRUGS (2)
  1. HYDROCODONE [Concomitant]
     Active Substance: HYDROCODONE
     Indication: PAIN
     Route: 065
  2. TENOFOVIR DISOPROXIL FUMARATE [Suspect]
     Active Substance: TENOFOVIR DISOPROXIL FUMARATE
     Indication: HEPATITIS B
     Dosage: 300 MG, UNK
     Route: 048

REACTIONS (7)
  - Gait disturbance [Unknown]
  - Anxiety disorder [Unknown]
  - Rheumatoid arthritis [Unknown]
  - Fatigue [Unknown]
  - Bipolar disorder [Unknown]
  - Unevaluable event [Unknown]
  - Hepatic failure [Unknown]

NARRATIVE: CASE EVENT DATE: 201402
